FAERS Safety Report 7449153-1 (Version None)
Quarter: 2011Q2

REPORT INFORMATION
  Report Type: 
  Country: None (occurrence: None)
  Receive Date: 20110502
  Receipt Date: 20110420
  Transmission Date: 20111010
  Serious: Yes (Hospitalization, Other)
  Sender: FDA-Public Use
  Company Number: AU-BIOGENIDEC-2011BI007204

PATIENT
  Age: 48 Year
  Sex: Male

DRUGS (7)
  1. VITAMIN D [Concomitant]
     Route: 048
  2. MOVIPREP [Concomitant]
  3. TYSABRI [Suspect]
     Indication: MULTIPLE SCLEROSIS
     Route: 042
     Dates: start: 20071107, end: 20110112
  4. AURORIX [Concomitant]
  5. VIAGRA [Concomitant]
  6. VALPROATE SODIUM [Concomitant]
  7. BACLOFEN [Concomitant]

REACTIONS (2)
  - PROGRESSIVE MULTIFOCAL LEUKOENCEPHALOPATHY [None]
  - MYOCLONIC EPILEPSY [None]
